FAERS Safety Report 5654449-X (Version None)
Quarter: 2008Q1

REPORT INFORMATION
  Report Type: 
  Country: None (occurrence: None)
  Receive Date: 20080305
  Receipt Date: 20080228
  Transmission Date: 20080703
  Serious: Yes (Death)
  Sender: FDA-Public Use
  Company Number: 024527

PATIENT
  Sex: Male

DRUGS (3)
  1. ADDERALL 10 [Suspect]
  2. HEROIN(DIAMORPHINE) INJECTION [Suspect]
  3. ADDERALL XR 20 [Suspect]

REACTIONS (2)
  - ACCIDENTAL OVERDOSE [None]
  - DRUG ABUSER [None]
